FAERS Safety Report 6406309-4 (Version None)
Quarter: 2009Q4

REPORT INFORMATION
  Report Type: 
  Country: None (occurrence: None)
  Receive Date: 20091019
  Receipt Date: 20091012
  Transmission Date: 20100525
  Serious: Yes (Life-Threatening, Hospitalization, Other)
  Sender: FDA-Public Use
  Company Number: PHHY2009FR44729

PATIENT
  Sex: Male
  Weight: 82.8 kg

DRUGS (2)
  1. ACLASTA [Suspect]
     Indication: OSTEITIS DEFORMANS
     Dosage: UNK
     Dates: start: 20090909
  2. TERALITHE [Concomitant]
     Indication: BIPOLAR I DISORDER
     Dosage: 800 MG DAILY
     Dates: start: 20081101

REACTIONS (3)
  - INFLUENZA LIKE ILLNESS [None]
  - MYOCARDIAL INFARCTION [None]
  - MYOCARDITIS [None]
